FAERS Safety Report 5873989-1 (Version None)
Quarter: 2008Q3

REPORT INFORMATION
  Report Type: 
  Country: None (occurrence: None)
  Receive Date: 20080908
  Receipt Date: 20080825
  Transmission Date: 20090109
  Serious: Yes (Other)
  Sender: FDA-Public Use
  Company Number: US-ELI_LILLY_AND_COMPANY-US200804002614

PATIENT
  Sex: Female
  Weight: 90.703 kg

DRUGS (5)
  1. CYMBALTA [Suspect]
     Indication: PARAESTHESIA
     Dosage: 1 D/F, UNK
  2. REBIF [Concomitant]
     Indication: MULTIPLE SCLEROSIS
     Dosage: 44 UG, 3/W
     Route: 058
     Dates: start: 20070313
  3. SYNTHROID [Concomitant]
  4. NEURONTIN [Concomitant]
     Indication: PARAESTHESIA
  5. NAPROXEN [Concomitant]

REACTIONS (4)
  - BENIGN BREAST NEOPLASM [None]
  - BREAST CANCER STAGE I [None]
  - HAEMATOCRIT DECREASED [None]
  - WHITE BLOOD CELL COUNT DECREASED [None]
